FAERS Safety Report 9315755 (Version 1)
Quarter: 2013Q2

REPORT INFORMATION
  Report Type: Report from Study
  Country: JP (occurrence: JP)
  Receive Date: 20130529
  Receipt Date: 20130529
  Transmission Date: 20140414
  Serious: Yes (Other)
  Sender: FDA-Public Use
  Company Number: JP-ROCHE-1226959

PATIENT
  Sex: 0

DRUGS (2)
  1. BEVACIZUMAB [Suspect]
     Indication: POLYPOIDAL CHOROIDAL VASCULOPATHY
     Route: 050
  2. TRIAMCINOLONE ACETONIDE [Suspect]
     Indication: POLYPOIDAL CHOROIDAL VASCULOPATHY
     Route: 050

REACTIONS (1)
  - Cataract [Unknown]
